FAERS Safety Report 7690851-2 (Version None)
Quarter: 2011Q3

REPORT INFORMATION
  Report Type: 
  Country: None (occurrence: None)
  Receive Date: 20110818
  Receipt Date: 20110809
  Transmission Date: 20111222
  Serious: Yes (Hospitalization)
  Sender: FDA-Public Use
  Company Number: US-SANOFI-AVENTIS-2011SA046774

PATIENT
  Age: 59 Year
  Sex: Male

DRUGS (6)
  1. LANTUS [Suspect]
     Route: 058
     Dates: start: 20110701
  2. SOLOSTAR [Suspect]
     Dates: start: 20110611
  3. LANTUS [Suspect]
     Dosage: DOSE:40 UNIT(S)
     Route: 058
     Dates: start: 20110701, end: 20110701
  4. ALL OTHER THERAPEUTIC PRODUCTS [Concomitant]
     Dates: end: 20110717
  5. LANTUS [Suspect]
     Dosage: DOSE:10 UNIT(S)
     Route: 058
     Dates: start: 20110611, end: 20110701
  6. LANTUS [Suspect]
     Dosage: DOSE:38 UNIT(S)
     Route: 058
     Dates: start: 20110701, end: 20110701

REACTIONS (8)
  - PRURITUS [None]
  - DIZZINESS [None]
  - HEPATIC FAILURE [None]
  - YELLOW SKIN [None]
  - INJECTION SITE HAEMATOMA [None]
  - BLOOD GLUCOSE DECREASED [None]
  - HYPERHIDROSIS [None]
  - HUNGER [None]
